FAERS Safety Report 5608116-9 (Version None)
Quarter: 2008Q1

REPORT INFORMATION
  Report Type: 
  Country: None (occurrence: None)
  Receive Date: 20080130
  Receipt Date: 20080121
  Transmission Date: 20080703
  Serious: Yes (Other)
  Sender: FDA-Public Use
  Company Number: CL-ROCHE-542832

PATIENT
  Age: 71 Year
  Sex: Female
  Weight: 88 kg

DRUGS (5)
  1. XENICAL [Suspect]
     Indication: OVERWEIGHT
     Route: 048
     Dates: start: 20071201, end: 20080117
  2. EUTIROX [Concomitant]
     Indication: HYPOTHYROIDISM
     Route: 048
  3. SERTRALINE HYDROCHLORIDE [Concomitant]
     Indication: DEPRESSION
     Dosage: DRUG NAME: EMERGEN
     Route: 048
  4. CLONAZEPAM [Concomitant]
  5. FOSAMAX [Concomitant]
     Indication: OSTEOPOROSIS

REACTIONS (4)
  - CEREBRAL THROMBOSIS [None]
  - DIZZINESS [None]
  - SYNCOPE [None]
  - TACHYCARDIA [None]
